FAERS Safety Report 6271398-7 (Version None)
Quarter: 2009Q3

REPORT INFORMATION
  Report Type: 
  Country: None (occurrence: None)
  Receive Date: 20090717
  Receipt Date: 20090609
  Transmission Date: 20100115
  Serious: Yes (Hospitalization)
  Sender: FDA-Public Use
  Company Number: GB-ROCHE-643467

PATIENT
  Age: 61 Year
  Sex: Female
  Weight: 63.9 kg

DRUGS (4)
  1. BONIVA [Suspect]
     Indication: OSTEOPENIA
     Route: 048
     Dates: start: 20070801, end: 20071001
  2. ADCAL D3 [Concomitant]
     Route: 048
  3. ASPIRIN [Concomitant]
     Route: 048
     Dates: start: 19950101
  4. FOSAMAX [Concomitant]
     Indication: OSTEOPENIA
     Route: 048
     Dates: start: 20040301, end: 20070701

REACTIONS (2)
  - BLOOD PRESSURE INCREASED [None]
  - GASTROINTESTINAL INFLAMMATION [None]
